FAERS Safety Report 18443688 (Version 1)
Quarter: 2020Q4

REPORT INFORMATION
  Report Type: Spontaneous
  Country: IT (occurrence: IT)
  Receive Date: 20201029
  Receipt Date: 20201029
  Transmission Date: 20210114
  Serious: Yes (Other)
  Sender: FDA-Public Use
  Company Number: IT-BAXTER-2020BAX021387

PATIENT
  Age: 25 Year
  Sex: Female

DRUGS (22)
  1. THIOTEPA. [Suspect]
     Active Substance: THIOTEPA
     Indication: BONE MARROW CONDITIONING REGIMEN
  2. RITUXIMAB. [Suspect]
     Active Substance: RITUXIMAB
     Dosage: RITUXIMAB BOOST DURING FOUR OF THE 12 CYCLES
     Route: 065
     Dates: start: 201610, end: 201701
  3. METHOTREXATE. [Suspect]
     Active Substance: METHOTREXATE
     Indication: DIFFUSE LARGE B-CELL LYMPHOMA
     Dosage: 4 CYCLES, PART OF MATRIX REGIMEN
     Route: 065
     Dates: start: 201704, end: 201708
  4. METHOTREXATE. [Suspect]
     Active Substance: METHOTREXATE
     Indication: PRIMARY MEDIASTINAL LARGE B-CELL LYMPHOMA STAGE IV
     Dosage: ON CYCLES 2, 6, 10
     Route: 065
     Dates: start: 201610, end: 201701
  5. DOXORUBICIN [Suspect]
     Active Substance: DOXORUBICIN
     Dosage: CYCLES 4, 8, 12
     Route: 065
     Dates: start: 201610, end: 201701
  6. THIOTEPA. [Suspect]
     Active Substance: THIOTEPA
     Indication: PRIMARY MEDIASTINAL LARGE B-CELL LYMPHOMA
     Dosage: 4 CYCLES 2900 MG IN FORUTH CYCLE/ PART OF MATRIX REGIMEN
     Route: 065
     Dates: start: 201704, end: 201708
  7. VINCRISTINE [Suspect]
     Active Substance: VINCRISTINE
     Indication: PRIMARY MEDIASTINAL LARGE B-CELL LYMPHOMA STAGE IV
     Dosage: PART OF R-MACOP-B REGIMEN; ON CYCLES 2, 6, 10 AND 4, 8, 12   UNK
     Route: 065
     Dates: start: 2016, end: 201701
  8. DOXORUBICIN [Suspect]
     Active Substance: DOXORUBICIN
     Indication: PRIMARY MEDIASTINAL LARGE B-CELL LYMPHOMA STAGE IV
     Dosage: ON CYCLES 1, 3, 5, 7, 9, 11
     Route: 065
     Dates: start: 201610, end: 201701
  9. ENDOXAN BAXTER [Suspect]
     Active Substance: CYCLOPHOSPHAMIDE
     Indication: PRIMARY MEDIASTINAL LARGE B-CELL LYMPHOMA
     Dosage: ON CYCLES 1, 3, 5, 7, 9, 11
     Route: 065
     Dates: start: 201610, end: 201701
  10. DOXORUBICIN [Suspect]
     Active Substance: DOXORUBICIN
     Dosage: PART OF R-MACOP-B REGIMEN; ON CYCLES 1, 3, 5, 7, 9, 11
     Route: 065
     Dates: start: 2016
  11. CYTARABINE. [Suspect]
     Active Substance: CYTARABINE
     Indication: PRIMARY MEDIASTINAL LARGE B-CELL LYMPHOMA
     Dosage: A SINGLE DOSE OF 2900MG OF CYTARABINE IN THE FOURTH CYCLE
     Route: 065
     Dates: start: 2017, end: 201708
  12. CYTARABINE. [Suspect]
     Active Substance: CYTARABINE
     Indication: DIFFUSE LARGE B-CELL LYMPHOMA
     Dosage: 4 CYCLE/PART OF MATRIX REGIMEN
     Route: 065
     Dates: start: 201704, end: 201708
  13. THIOTEPA. [Suspect]
     Active Substance: THIOTEPA
     Indication: DIFFUSE LARGE B-CELL LYMPHOMA
     Dosage: PART OF CONDITIONING TREATMENT
     Route: 065
  14. METHOTREXATE. [Suspect]
     Active Substance: METHOTREXATE
     Dosage: PART OF R-MACOP-B REGIMEN; ON CYCLES 2, 6, 10
     Route: 065
     Dates: start: 2016
  15. GRANULOCYTE COLONY STIMULATING FACTOR [Suspect]
     Active Substance: GRANULOCYTE COLONY-STIMULATING FACTOR NOS
     Indication: HAEMATOPOIETIC STEM CELL MOBILISATION
     Route: 065
  16. CARMUSTINE. [Suspect]
     Active Substance: CARMUSTINE
     Indication: BONE MARROW CONDITIONING REGIMEN
     Dosage: PART OF CONDITIONING TREATMENT
     Route: 065
  17. PLERIXAFOR [Concomitant]
     Active Substance: PLERIXAFOR
     Indication: HAEMATOPOIETIC STEM CELL MOBILISATION
     Dosage: UNK
     Route: 065
     Dates: start: 2017
  18. VINCRISTINE [Suspect]
     Active Substance: VINCRISTINE
     Dosage: ON CYCLES 2, 6, 10 AND CYCLES 4, 8, 12.
     Route: 065
     Dates: start: 201610, end: 201701
  19. RITUXIMAB. [Suspect]
     Active Substance: RITUXIMAB
     Indication: PRIMARY MEDIASTINAL LARGE B-CELL LYMPHOMA STAGE IV
     Dosage: PART OF MATRIX REGIMEN
     Route: 065
     Dates: start: 201704, end: 201708
  20. PREDNISONE. [Suspect]
     Active Substance: PREDNISONE
     Indication: PRIMARY MEDIASTINAL LARGE B-CELL LYMPHOMA
     Dosage: 12 CYCLE, PART OF R-MACOP-B REGIMEN; GIVEN CONTINUOUSLY
     Route: 065
     Dates: start: 201610, end: 201701
  21. RITUXIMAB. [Suspect]
     Active Substance: RITUXIMAB
     Indication: DIFFUSE LARGE B-CELL LYMPHOMA
     Dosage: PART OF R-MACOP-B REGIMEN; RITUXIMAB BOOST DURING FOUR OF THE 12 CYCLES
     Route: 065
     Dates: start: 2016
  22. BLEOMYCIN [Suspect]
     Active Substance: BLEOMYCIN SULFATE
     Indication: PRIMARY MEDIASTINAL LARGE B-CELL LYMPHOMA STAGE IV
     Dosage: CYCLES 4, 8, 12/PART OF R-MACOP-B REGIMEN; ON CYCLES 4, 8, 12
     Route: 065
     Dates: start: 201610, end: 201701

REACTIONS (14)
  - Pharyngeal inflammation [Unknown]
  - Vision blurred [Unknown]
  - Thrombocytopenia [Unknown]
  - Hypersensitivity [Unknown]
  - Aspergillus infection [Unknown]
  - Anaemia [Unknown]
  - Dry eye [Unknown]
  - Haematotoxicity [Unknown]
  - Respiratory tract infection fungal [Unknown]
  - Stomatitis [Unknown]
  - Herpes simplex reactivation [Unknown]
  - Pyrexia [Recovered/Resolved]
  - Neutropenia [Recovered/Resolved]
  - Nausea [Unknown]

NARRATIVE: CASE EVENT DATE: 2017
